FAERS Safety Report 7123750-5 (Version None)
Quarter: 2010Q4

REPORT INFORMATION
  Report Type: 
  Country: None (occurrence: None)
  Receive Date: 20101125
  Receipt Date: 20101112
  Transmission Date: 20110411
  Serious: Yes (Other)
  Sender: FDA-Public Use
  Company Number: PHHY2010DE79554

PATIENT
  Age: 90 Year
  Sex: Female

DRUGS (2)
  1. EXELON [Suspect]
     Dosage: 4.6 MG/24  HOUR
     Route: 062
     Dates: start: 20090101
  2. EXELON [Suspect]
     Dosage: 9.5 MG/24 HOUR
     Route: 062
     Dates: start: 20100801, end: 20101101

REACTIONS (6)
  - CEREBROVASCULAR ACCIDENT [None]
  - CONFUSIONAL STATE [None]
  - FALL [None]
  - GAIT DISTURBANCE [None]
  - HALLUCINATION [None]
  - RESTLESSNESS [None]
